FAERS Safety Report 4519116-4 (Version None)
Quarter: 2004Q4

REPORT INFORMATION
  Report Type: 
  Country: None (occurrence: None)
  Receive Date: 20041206
  Receipt Date: 20041020
  Transmission Date: 20050328
  Serious: Yes (Hospitalization)
  Sender: FDA-Public Use
  Company Number: 200413257JP

PATIENT
  Age: 56 Year
  Sex: Female
  Weight: 52 kg

DRUGS (13)
  1. LASIX [Suspect]
     Indication: NEPHROTIC SYNDROME
     Route: 041
     Dates: start: 20041006, end: 20041009
  2. LASIX [Suspect]
     Indication: RENAL FAILURE
     Route: 041
     Dates: start: 20041006, end: 20041009
  3. AMLODIPINE [Suspect]
     Indication: HYPERTENSION
     Route: 048
     Dates: start: 20040701, end: 20040928
  4. FUROSEMIDE [Suspect]
     Indication: NEPHROTIC SYNDROME
     Route: 048
     Dates: end: 20041013
  5. FUROSEMIDE [Suspect]
     Indication: RENAL FAILURE CHRONIC
     Route: 048
     Dates: end: 20041013
  6. OMEPRAZOLE [Concomitant]
     Indication: GASTRITIS
     Route: 048
  7. NU-LOTAN [Concomitant]
     Indication: HYPERTENSION
     Route: 048
  8. ENALAPRIL MALEATE [Concomitant]
     Indication: HYPERTENSION
     Route: 048
  9. COMELIAN [Concomitant]
     Indication: NEPHROTIC SYNDROME
     Route: 048
  10. LIPITOR [Concomitant]
     Indication: HYPERLIPIDAEMIA
     Route: 048
  11. D ALFA [Concomitant]
     Indication: HYPERPARATHYROIDISM SECONDARY
     Route: 048
  12. ALDACTONE-A [Concomitant]
     Indication: NEPHROTIC SYNDROME
     Route: 048
  13. ALDACTONE-A [Concomitant]
     Indication: RENAL FAILURE
     Route: 048

REACTIONS (7)
  - ASCITES [None]
  - DEHYDRATION [None]
  - HEPATIC FUNCTION ABNORMAL [None]
  - HEPATIC INFARCTION [None]
  - NEPHROTIC SYNDROME [None]
  - OEDEMA [None]
  - RENAL FAILURE [None]
